FAERS Safety Report 26150954 (Version 1)
Quarter: 2025Q4

REPORT INFORMATION
  Report Type: Spontaneous
  Country: CN (occurrence: CN)
  Receive Date: 20251212
  Receipt Date: 20251212
  Transmission Date: 20260118
  Serious: Yes (Other)
  Sender: SANDOZ
  Company Number: CN-002147023-NVSC2025CN189308

PATIENT
  Age: 2 Year
  Sex: Female
  Weight: 11 kg

DRUGS (1)
  1. DEXAMETHASONE\TOBRAMYCIN [Suspect]
     Active Substance: DEXAMETHASONE\TOBRAMYCIN
     Indication: Conjunctivitis
     Dosage: UNK, TID (1 INJECTION)
     Route: 047
     Dates: start: 20251126, end: 20251201

REACTIONS (8)
  - Punctate keratitis [Recovered/Resolved]
  - Dry eye [Recovering/Resolving]
  - Ocular discomfort [Recovering/Resolving]
  - Blepharospasm [Recovering/Resolving]
  - Conjunctival haemorrhage [Recovering/Resolving]
  - Injury corneal [Recovered/Resolved]
  - Ocular hyperaemia [Recovering/Resolving]
  - Conjunctival hyperaemia [Recovering/Resolving]

NARRATIVE: CASE EVENT DATE: 20251201
